FAERS Safety Report 14924898 (Version 4)
Quarter: 2019Q4

REPORT INFORMATION
  Report Type: Report from Study
  Country: US (occurrence: US)
  Receive Date: 20180522
  Receipt Date: 20191213
  Transmission Date: 20200122
  Serious: No
  Sender: FDA-Public Use
  Company Number: PHEH2018US019694

PATIENT
  Sex: Male
  Weight: 200 kg

DRUGS (1)
  1. ENTRESTO [Suspect]
     Active Substance: SACUBITRIL\VALSARTAN
     Indication: RENAL DISORDER
     Dosage: UNK
     Route: 048

REACTIONS (6)
  - Renal disorder [Unknown]
  - Cardiac disorder [Unknown]
  - Asthenia [Unknown]
  - Weight decreased [Unknown]
  - Gait disturbance [Unknown]
  - Product use in unapproved indication [Unknown]
